FAERS Safety Report 6533942-1 (Version None)
Quarter: 2010Q1

REPORT INFORMATION
  Report Type: 
  Country: None (occurrence: None)
  Receive Date: 20100112
  Receipt Date: 20091231
  Transmission Date: 20100710
  Serious: Yes (Death, Hospitalization, Other)
  Sender: FDA-Public Use
  Company Number: US-BIOGENIDEC-2009BI034471

PATIENT
  Age: 64 Year
  Sex: Male

DRUGS (18)
  1. TYSABRI [Suspect]
     Indication: CROHN'S DISEASE
     Route: 042
     Dates: start: 20081212, end: 20090828
  2. ZOLPIDEM [Concomitant]
  3. CLONIDINE [Concomitant]
  4. VENLAFAXINE [Concomitant]
  5. OXYCODONE [Concomitant]
  6. METOPROLOL [Concomitant]
  7. UROCIT-K [Concomitant]
  8. VITAMIN B-12 [Concomitant]
  9. FENOFIBRATE [Concomitant]
  10. PREDNISONE [Concomitant]
     Dates: start: 20090821
  11. COMPAZINE [Concomitant]
  12. DIAZEPAM [Concomitant]
  13. MULTI-VITAMINS [Concomitant]
  14. NEXIUM [Concomitant]
  15. NORVASC [Concomitant]
  16. XANAX [Concomitant]
  17. MORPHINE [Concomitant]
  18. IRON SULFATETHIAMIN COMPOUND TAB [Concomitant]

REACTIONS (5)
  - ABDOMINAL PAIN [None]
  - CROHN'S DISEASE [None]
  - FAILURE TO THRIVE [None]
  - RENAL FAILURE ACUTE [None]
  - WOUND DEHISCENCE [None]
